FAERS Safety Report 8596090-5 (Version None)
Quarter: 2012Q3

REPORT INFORMATION
  Report Type: 
  Country: None (occurrence: None)
  Receive Date: 20120815
  Receipt Date: 20120806
  Transmission Date: 20120928
  Serious: Yes (Hospitalization)
  Sender: FDA-Public Use
  Company Number: CN-ASTRAZENECA-2012SE45553

PATIENT
  Age: 71 Year
  Sex: Female

DRUGS (4)
  1. OMEPRAZOLE (PRISOLEC) [Suspect]
     Route: 048
     Dates: start: 20120726, end: 20120728
  2. NEXIUM [Suspect]
     Indication: GASTROOESOPHAGEAL REFLUX DISEASE
     Route: 048
     Dates: start: 20120225, end: 20120701
  3. HYDROTALCITE [Concomitant]
     Indication: GASTROOESOPHAGEAL REFLUX DISEASE
     Route: 048
     Dates: start: 20120225
  4. FARMOTIDINE [Concomitant]
     Indication: GASTROOESOPHAGEAL REFLUX DISEASE
     Route: 048
     Dates: start: 20120225

REACTIONS (4)
  - INTENTIONAL DRUG MISUSE [None]
  - HAEMORRHOIDS [None]
  - SLEEP DISORDER DUE TO GENERAL MEDICAL CONDITION, INSOMNIA TYPE [None]
  - REGURGITATION [None]
